FAERS Safety Report 9468200 (Version 1)
Quarter: 2013Q3

REPORT INFORMATION
  Report Type: Spontaneous
  Country: CN (occurrence: None)
  Receive Date: 20130816
  Receipt Date: 20130816
  Transmission Date: 20140515
  Serious: Yes (Death)
  Sender: FDA-Public Use
  Company Number: 2013P1016860

PATIENT
  Age: 58 Year
  Sex: Female

DRUGS (9)
  1. PREDNISONE [Suspect]
     Indication: PLASMA CELL MYELOMA
  2. DEXAMETHASONE [Suspect]
     Indication: PLASMA CELL MYELOMA
  3. CARMUSTINE [Concomitant]
  4. CYCLOPHOSPHAMIDE [Concomitant]
  5. CHLORAMBUCIL [Concomitant]
  6. VINCRISTINE [Concomitant]
  7. ADRIAMYCIN [Concomitant]
  8. CYCLOPHOSPHAMIDE [Concomitant]
  9. THALIDOMIDE [Concomitant]

REACTIONS (10)
  - Diabetes mellitus [None]
  - Blood glucose abnormal [None]
  - Convulsion [None]
  - Vomiting [None]
  - Nausea [None]
  - Diarrhoea [None]
  - Abdominal pain [None]
  - Listeria sepsis [None]
  - Nervous system disorder [None]
  - Coma [None]
